FAERS Safety Report 18145737 (Version 1)
Quarter: 2020Q3

REPORT INFORMATION
  Report Type: Spontaneous
  Country: US (occurrence: US)
  Receive Date: 20200813
  Receipt Date: 20200813
  Transmission Date: 20201103
  Serious: No
  Sender: FDA-Public Use
  Company Number: US-AMGEN-USASP2020128741

PATIENT
  Age: 52 Year
  Sex: Male

DRUGS (2)
  1. LIVALO [Concomitant]
     Active Substance: PITAVASTATIN CALCIUM
     Indication: BLOOD CHOLESTEROL INCREASED
     Dosage: 2 MILLIGRAM
     Dates: start: 2019
  2. REPATHA [Suspect]
     Active Substance: EVOLOCUMAB
     Indication: BLOOD CHOLESTEROL INCREASED
     Dosage: 140 MILLIGRAM, Q2WK
     Route: 065
     Dates: start: 20200714

REACTIONS (7)
  - Hypoacusis [Recovering/Resolving]
  - Erythema [Recovering/Resolving]
  - Arthralgia [Recovered/Resolved]
  - Ear discomfort [Recovering/Resolving]
  - Tinnitus [Recovering/Resolving]
  - Eye swelling [Recovering/Resolving]
  - Hordeolum [Unknown]

NARRATIVE: CASE EVENT DATE: 2020
